FAERS Safety Report 6282446-2 (Version None)
Quarter: 2009Q3

REPORT INFORMATION
  Report Type: 
  Country: None (occurrence: None)
  Receive Date: 20090724
  Receipt Date: 20090713
  Transmission Date: 20100115
  Serious: Yes (Death, Other)
  Sender: FDA-Public Use
  Company Number: US-ROCHE-643331

PATIENT

DRUGS (2)
  1. MYCOPHENOLATE MOFETIL [Suspect]
     Indication: MYASTHENIA GRAVIS
     Route: 065
  2. PREDNISONE [Suspect]
     Indication: MYASTHENIA GRAVIS
     Route: 065

REACTIONS (4)
  - ARRHYTHMIA [None]
  - CARDIAC DISORDER [None]
  - MULTI-ORGAN FAILURE [None]
  - MYASTHENIA GRAVIS [None]
